FAERS Safety Report 15030094 (Version 1)
Quarter: 2018Q2

REPORT INFORMATION
  Report Type: Spontaneous
  Country: SE (occurrence: SE)
  Receive Date: 20180619
  Receipt Date: 20180619
  Transmission Date: 20180711
  Serious: Yes (Life-Threatening, Other)
  Sender: FDA-Public Use
  Company Number: SE-G+W LABS-GW2018SE000068

PATIENT

DRUGS (3)
  1. INSULIN [Concomitant]
     Active Substance: INSULIN NOS
     Indication: DIABETES MELLITUS
     Dosage: UNK
     Route: 065
  2. CORTISONE [Concomitant]
     Active Substance: CORTISONE\HYDROCORTISONE
     Indication: POLYMYALGIA RHEUMATICA
     Dosage: UNK
     Route: 065
  3. METRONIDAZOLE. [Suspect]
     Active Substance: METRONIDAZOLE
     Indication: ANTIBIOTIC PROPHYLAXIS
     Dosage: 400 MG, TID
     Route: 065

REACTIONS (4)
  - Encephalopathy [Recovered/Resolved]
  - Cerebrovascular accident [Recovered/Resolved]
  - Creatinine renal clearance decreased [Not Recovered/Not Resolved]
  - Myocardial infarction [Recovered/Resolved]
